FAERS Safety Report 8902764 (Version 4)
Quarter: 2017Q1

REPORT INFORMATION
  Report Type: Spontaneous
  Country: US (occurrence: US)
  Receive Date: 20121112
  Receipt Date: 20170126
  Transmission Date: 20170429
  Serious: Yes (Hospitalization, Other)
  Sender: FDA-Public Use
  Company Number: US-ASTRAZENECA-2012SE84891

PATIENT
  Age: 805 Month
  Sex: Male
  Weight: 81.6 kg

DRUGS (33)
  1. CRESTOR [Suspect]
     Active Substance: ROSUVASTATIN CALCIUM
     Indication: BLOOD CHOLESTEROL ABNORMAL
     Dosage: 40.0MG UNKNOWN
     Route: 048
     Dates: end: 201408
  2. GEMFIBROZIL. [Concomitant]
     Active Substance: GEMFIBROZIL
     Indication: LIVER DISORDER
     Route: 048
     Dates: start: 2010
  3. PLAVIX [Concomitant]
     Active Substance: CLOPIDOGREL BISULFATE
     Indication: ANTICOAGULANT THERAPY
     Route: 048
     Dates: start: 2010
  4. PANTOPRAZOLE DELAYED SLOW RELEASE [Concomitant]
     Indication: DRUG INTERACTION
     Dosage: 40.0MG UNKNOWN
     Route: 048
     Dates: start: 2006
  5. KRILL OIL AND OMEGA 3 [Concomitant]
     Indication: MUSCLE DISORDER
     Route: 048
     Dates: start: 2010
  6. ECOTRIN [Concomitant]
     Active Substance: ASPIRIN
     Dosage: 40.0MG UNKNOWN
     Route: 048
     Dates: start: 2006
  7. ATORVASTATIN [Concomitant]
     Active Substance: ATORVASTATIN
  8. HYDROCODONE-ACETAMINOPHEN [Concomitant]
     Active Substance: ACETAMINOPHEN\HYDROCODONE
  9. LISINOPRIL. [Suspect]
     Active Substance: LISINOPRIL
     Indication: ANGIOPLASTY
     Dosage: BID
     Route: 048
     Dates: start: 2004
  10. LIPITOR GENERIC [Suspect]
     Active Substance: ATORVASTATIN CALCIUM
     Dosage: GENERIC
     Route: 065
  11. GLIPIZIDE. [Concomitant]
     Active Substance: GLIPIZIDE
     Indication: DIABETES MELLITUS
     Route: 048
     Dates: start: 2006
  12. GLYBURIDE. [Concomitant]
     Active Substance: GLYBURIDE
     Indication: DIABETES MELLITUS
     Route: 048
     Dates: start: 2005, end: 2006
  13. CENTRUM SILVER WITH VITAMIN D LYPOPENE [Concomitant]
     Indication: VITAMIN SUPPLEMENTATION
     Dosage: DAILY
     Route: 048
     Dates: start: 2001
  14. XANAX [Concomitant]
     Active Substance: ALPRAZOLAM
     Dosage: GENERIC
  15. VALERIAN [Concomitant]
     Active Substance: VALERIAN
  16. CRESTOR [Suspect]
     Active Substance: ROSUVASTATIN CALCIUM
     Indication: BLOOD CHOLESTEROL ABNORMAL
     Dosage: GENERIC UNKNOWN
     Route: 048
  17. CARVEDILOL. [Concomitant]
     Active Substance: CARVEDILOL
     Indication: BLOOD PRESSURE INCREASED
     Route: 048
     Dates: start: 2008
  18. VANSTATIN [Concomitant]
  19. COENZYME Q10 [Suspect]
     Active Substance: UBIDECARENONE
     Indication: CARDIAC DISORDER
     Route: 048
     Dates: start: 2012
  20. MECLIZINE [Concomitant]
     Active Substance: MECLIZINE HYDROCHLORIDE
     Indication: VERTIGO
     Route: 048
     Dates: start: 2010
  21. FUROSEMIDE. [Concomitant]
     Active Substance: FUROSEMIDE
  22. BAYCOL [Concomitant]
     Active Substance: CERIVASTATIN SODIUM
     Dates: start: 2001
  23. LISINOPRIL. [Suspect]
     Active Substance: LISINOPRIL
     Indication: RENAL DISORDER
     Dosage: BID
     Route: 048
     Dates: start: 2004
  24. LOVASTATIN. [Concomitant]
     Active Substance: LOVASTATIN
  25. NIASPAN [Concomitant]
     Active Substance: NIACIN
  26. TYLENOL [Concomitant]
     Active Substance: ACETAMINOPHEN
  27. CRESTOR [Suspect]
     Active Substance: ROSUVASTATIN CALCIUM
     Indication: BLOOD CHOLESTEROL ABNORMAL
     Route: 048
     Dates: start: 2010
  28. LISINOPRIL. [Suspect]
     Active Substance: LISINOPRIL
     Indication: STENT PLACEMENT
     Dosage: BID
     Route: 048
     Dates: start: 2004
  29. ASPIRIN. [Suspect]
     Active Substance: ASPIRIN
  30. CIMETIDINE [Concomitant]
     Active Substance: CIMETIDINE
     Indication: DRUG INTERACTION
     Route: 048
     Dates: start: 2006
  31. HYDROXYZINE [Concomitant]
     Active Substance: HYDROXYZINE HYDROCHLORIDE
     Indication: MULTIPLE ALLERGIES
  32. FOLIC ACID WITH BC AND B12 [Concomitant]
  33. AGRINOX [Concomitant]

REACTIONS (42)
  - Suicidal ideation [Unknown]
  - Balance disorder [Unknown]
  - Abdominal discomfort [Unknown]
  - Depression [Unknown]
  - Intentional product misuse [Unknown]
  - Cerebrovascular accident [Unknown]
  - Blood triglycerides increased [Unknown]
  - Negative thoughts [Unknown]
  - Adverse event [Unknown]
  - Myocardial infarction [Unknown]
  - Speech disorder [Unknown]
  - Cardiac disorder [Unknown]
  - Visual impairment [Unknown]
  - Muscle disorder [Unknown]
  - Blood cholesterol increased [Unknown]
  - Myalgia [Unknown]
  - Insomnia [Unknown]
  - Carotid artery occlusion [Unknown]
  - Hearing disability [Unknown]
  - Asthenia [Unknown]
  - Drug ineffective [Unknown]
  - Decreased activity [Unknown]
  - Vertigo [Unknown]
  - Muscle strain [Unknown]
  - Motor dysfunction [Unknown]
  - Thinking abnormal [Unknown]
  - Scratch [Unknown]
  - Renal disorder [Unknown]
  - Muscle atrophy [Unknown]
  - General physical health deterioration [Unknown]
  - Exercise tolerance decreased [Unknown]
  - Adverse drug reaction [Unknown]
  - Decreased interest [Unknown]
  - Prostate cancer [Unknown]
  - Feeling abnormal [Unknown]
  - Pyrexia [Unknown]
  - Anal incontinence [Unknown]
  - Drug dose omission [Unknown]
  - Liver disorder [Unknown]
  - Feeding disorder [Unknown]
  - Decreased appetite [Unknown]
  - Blood cholesterol abnormal [Unknown]

NARRATIVE: CASE EVENT DATE: 200909
